FAERS Safety Report 10599359 (Version 3)
Quarter: 2015Q1

REPORT INFORMATION
  Report Type: Spontaneous
  Country: JP (occurrence: JP)
  Receive Date: 20141121
  Receipt Date: 20150202
  Transmission Date: 20150720
  Serious: Yes (Life-Threatening, Hospitalization, Other)
  Sender: FDA-Public Use
  Company Number: JP-GLAXOSMITHKLINE-JP2014JPN022739

PATIENT
  Age: 17 Year
  Sex: Female

DRUGS (2)
  1. LAMICTAL [Suspect]
     Active Substance: LAMOTRIGINE
     Indication: EPILEPSY
     Dosage: 50 MG, QD
     Route: 048
     Dates: start: 2014
  2. CARBAMAZEPINE. [Concomitant]
     Active Substance: CARBAMAZEPINE
     Indication: EPILEPSY
     Dosage: UNK MG, UNK

REACTIONS (7)
  - Pancytopenia [Recovered/Resolved]
  - Rash [Recovered/Resolved]
  - Drug reaction with eosinophilia and systemic symptoms [Recovering/Resolving]
  - Erythema [Recovering/Resolving]
  - Swelling face [Unknown]
  - Pyrexia [Recovered/Resolved]
  - Rash [Recovering/Resolving]
